FAERS Safety Report 24097103 (Version 1)
Quarter: 2024Q3

REPORT INFORMATION
  Report Type: Spontaneous
  Country: TW (occurrence: TW)
  Receive Date: 20240716
  Receipt Date: 20240716
  Transmission Date: 20241016
  Serious: Yes (Hospitalization, Other)
  Sender: DAIICHI
  Company Number: TW-DAIICHI SANKYO, INC.-DSJ-2024-135374

PATIENT
  Age: 91 Year
  Sex: Male
  Weight: 63 kg

DRUGS (12)
  1. EDOXABAN [Suspect]
     Active Substance: EDOXABAN
     Indication: Atrial fibrillation
     Dosage: 0.5 DF, QD (30 MG HALF TABLET)
     Route: 048
     Dates: start: 202303
  2. ASPIRIN [Concomitant]
     Active Substance: ASPIRIN
     Indication: Product used for unknown indication
     Dosage: 100 MG, QD
     Route: 065
  3. METFORMIN HYDROCHLORIDE [Concomitant]
     Active Substance: METFORMIN HYDROCHLORIDE
     Indication: Product used for unknown indication
     Dosage: 1 DF, BID
     Route: 065
  4. LINAGLIPTIN [Concomitant]
     Active Substance: LINAGLIPTIN
     Indication: Product used for unknown indication
     Dosage: 5 MG, QD
     Route: 065
  5. NORVASC [Concomitant]
     Active Substance: AMLODIPINE BESYLATE
     Indication: Product used for unknown indication
     Dosage: 5 MG, QD
     Route: 065
  6. INSULIN ASPART [Concomitant]
     Active Substance: INSULIN ASPART
     Indication: Product used for unknown indication
     Dosage: 28 IU/20 IU
     Route: 065
  7. LIPITOR [Concomitant]
     Active Substance: ATORVASTATIN CALCIUM
     Indication: Product used for unknown indication
     Dosage: 10 MG
     Route: 065
  8. PLAVIX [Concomitant]
     Active Substance: CLOPIDOGREL BISULFATE
     Indication: Antiplatelet therapy
     Dosage: UNK
     Route: 065
  9. EXFORGE [Concomitant]
     Active Substance: AMLODIPINE BESYLATE\VALSARTAN
     Indication: Product used for unknown indication
     Dosage: UNK
     Route: 065
  10. ATORVASTATIN CALCIUM\EZETIMIBE [Concomitant]
     Active Substance: ATORVASTATIN CALCIUM\EZETIMIBE
     Indication: Product used for unknown indication
     Dosage: UNK
     Route: 065
  11. VALPROIC ACID [Concomitant]
     Active Substance: VALPROIC ACID
     Indication: Postictal paralysis
     Dosage: 500 MG
     Route: 065
  12. CLONAZEPAM [Concomitant]
     Active Substance: CLONAZEPAM
     Indication: Postictal paralysis
     Dosage: 0.5 MG HS
     Route: 065

REACTIONS (7)
  - Pneumonia [Unknown]
  - Septic shock [Unknown]
  - Fall [Recovered/Resolved]
  - Periorbital haemorrhage [Recovered/Resolved]
  - Aortic aneurysm [Recovered/Resolved]
  - Gastric ulcer [Recovered/Resolved]
  - Gastrooesophageal reflux disease [Recovered/Resolved]

NARRATIVE: CASE EVENT DATE: 20230601
